FAERS Safety Report 5368801-3 (Version None)
Quarter: 2007Q2

REPORT INFORMATION
  Report Type: 
  Country: None (occurrence: None)
  Receive Date: 20070622
  Receipt Date: 20070622
  Transmission Date: 20071010
  Serious: Yes (Death)
  Sender: FDA-Public Use
  Company Number: None

PATIENT
  Age: 30 Year
  Sex: Male
  Weight: 58.9676 kg

DRUGS (1)
  1. FENTANYL-100 [Suspect]
     Indication: PAIN
     Dosage: 100MG ONCE EVERY 3 DAYS TRANSDERMAL
     Route: 062
     Dates: start: 20060901, end: 20070318

REACTIONS (1)
  - DRUG TOXICITY [None]
